FAERS Safety Report 11890563 (Version 1)
Quarter: 2016Q1

REPORT INFORMATION
  Report Type: Other
  Country: DE (occurrence: DE)
  Receive Date: 20160105
  Receipt Date: 20160105
  Transmission Date: 20160526
  Serious: Yes (Life-Threatening, Hospitalization)
  Sender: FDA-Public Use
  Company Number: DE-MYLANLABS-2015M1046701

PATIENT

DRUGS (1)
  1. IRBESARTAN. [Suspect]
     Active Substance: IRBESARTAN
     Indication: HYPOTENSION
     Dosage: 150 MG, UNK
     Route: 048
     Dates: start: 20150905, end: 20151205

REACTIONS (7)
  - Anaphylactic reaction [Recovered/Resolved]
  - Fatigue [Recovered/Resolved]
  - Exercise tolerance decreased [Recovered/Resolved]
  - Dysphagia [Recovered/Resolved]
  - Swollen tongue [Recovered/Resolved]
  - Dyspnoea [Recovered/Resolved]
  - Pharyngeal oedema [Recovered/Resolved]

NARRATIVE: CASE EVENT DATE: 20150915
